FAERS Safety Report 20885660 (Version 3)
Quarter: 2022Q2

REPORT INFORMATION
  Report Type: Report from Study
  Country: CA (occurrence: CA)
  Receive Date: 20220527
  Receipt Date: 20220622
  Transmission Date: 20220721
  Serious: Yes (Other)
  Sender: FDA-Public Use
  Company Number: CA-OTSUKA-2022_028952

PATIENT
  Sex: Female

DRUGS (2)
  1. CEDAZURIDINE\DECITABINE [Suspect]
     Active Substance: CEDAZURIDINE\DECITABINE
     Indication: Chronic myelomonocytic leukaemia
     Dosage: UNK (CYCLE 1) (5 PILLS)
     Route: 065
     Dates: start: 20220518
  2. CEDAZURIDINE\DECITABINE [Suspect]
     Active Substance: CEDAZURIDINE\DECITABINE
     Dosage: UNK (CYCLE 1) (3 PILLS)
     Route: 065

REACTIONS (3)
  - Lip neoplasm malignant stage unspecified [Unknown]
  - Cancer pain [Unknown]
  - Acute myeloid leukaemia [Unknown]
